FAERS Safety Report 19455950 (Version 3)
Quarter: 2021Q3

REPORT INFORMATION
  Report Type: Spontaneous
  Country: GB (occurrence: GB)
  Receive Date: 20210624
  Receipt Date: 20210831
  Transmission Date: 20211014
  Serious: Yes (Other)
  Sender: FDA-Public Use
  Company Number: GB-DRREDDYS-SPO/UKI/21/0136685

PATIENT
  Age: 5 Year
  Sex: Female

DRUGS (1)
  1. IBUPROFEN. [Suspect]
     Active Substance: IBUPROFEN
     Indication: PRODUCT USED FOR UNKNOWN INDICATION

REACTIONS (6)
  - Blister [Recovered/Resolved]
  - Condition aggravated [Recovered/Resolved]
  - Rhinitis [Recovered/Resolved]
  - Varicella [Recovered/Resolved]
  - Vulval ulceration [Recovered/Resolved]
  - Rash erythematous [Recovered/Resolved]
